FAERS Safety Report 6468448-1 (Version None)
Quarter: 2009Q4

REPORT INFORMATION
  Report Type: 
  Country: None (occurrence: None)
  Receive Date: 20091203
  Receipt Date: 20091127
  Transmission Date: 20100525
  Serious: Yes (Hospitalization)
  Sender: FDA-Public Use
  Company Number: FR-ALLERGAN-0916626US

PATIENT
  Age: 87 Year
  Sex: Male

DRUGS (10)
  1. TROSPIUM CHLORIDE [Suspect]
     Indication: DRUG USE FOR UNKNOWN INDICATION
     Dosage: 1 X 1 DF / 1 DAY(S)
     Route: 048
     Dates: start: 20091016, end: 20091016
  2. TIAPRIDAL [Concomitant]
     Dosage: 5 GTT, QHS
  3. EBIXA 10 [Concomitant]
     Dosage: 1 IN THE MORNING
  4. RISPERDAL [Concomitant]
     Dosage: 0.5 MORNING AND EVENING
  5. CITALOPRAM 20 [Concomitant]
     Dosage: 1 MORNING AND 1 EVENING
  6. STILNOX 10 [Concomitant]
     Dosage: 2 IN THE EVENING
  7. PARIET 20 [Concomitant]
     Dosage: 1 IN THE EVENING
  8. LODALES 20 [Concomitant]
     Dosage: 1 IN THE EVENING
  9. JOSIR LP [Concomitant]
     Dosage: 1 IN THE MORNING
  10. EUPRESSYL 30 [Concomitant]
     Dosage: 1 IN THE EVENING

REACTIONS (1)
  - TREMOR [None]
